FAERS Safety Report 5133433-9 (Version None)
Quarter: 2006Q4

REPORT INFORMATION
  Report Type: 
  Country: None (occurrence: None)
  Receive Date: 20061024
  Receipt Date: 20061019
  Transmission Date: 20070319
  Serious: Yes (Other)
  Sender: FDA-Public Use
  Company Number: GR-ELI_LILLY_AND_COMPANY-GR200610003271

PATIENT
  Age: 30 Year
  Sex: Male

DRUGS (2)
  1. OLANZAPINE [Suspect]
     Indication: MILD MENTAL RETARDATION
     Dosage: 10 MG, DAILY (1/D)
     Route: 048
     Dates: start: 20020101
  2. OLANZAPINE [Suspect]
     Dosage: 100 MG, UNKNOWN
     Route: 048

REACTIONS (4)
  - INTENTIONAL OVERDOSE [None]
  - MENTAL DISORDER [None]
  - REGRESSIVE BEHAVIOUR [None]
  - SOMNOLENCE [None]
